FAERS Safety Report 19305127 (Version 2)
Quarter: 2021Q4

REPORT INFORMATION
  Report Type: Other
  Country: US (occurrence: US)
  Receive Date: 20210526
  Receipt Date: 20211018
  Transmission Date: 20220303
  Serious: Yes (Death, Hospitalization, Other)
  Sender: FDA-Public Use
  Company Number: US-INTERCEPT-PM2021001749

PATIENT
  Sex: Female

DRUGS (1)
  1. OCALIVA [Suspect]
     Active Substance: OBETICHOLIC ACID
     Indication: Primary biliary cholangitis
     Dosage: 5 MILLIGRAM, QD
     Route: 048

REACTIONS (10)
  - Acute respiratory failure [Fatal]
  - Cardiac failure congestive [Fatal]
  - Myelodysplastic syndrome [Fatal]
  - Septic shock [Fatal]
  - Klebsiella bacteraemia [Fatal]
  - Mental status changes [Unknown]
  - Pancytopenia [Unknown]
  - Atrial fibrillation [Unknown]
  - Acute kidney injury [Unknown]
  - Metabolic encephalopathy [Unknown]
